FAERS Safety Report 11513292 (Version 1)
Quarter: 2015Q3

REPORT INFORMATION
  Report Type: Spontaneous
  Country: JP (occurrence: JP)
  Receive Date: 20150916
  Receipt Date: 20150916
  Transmission Date: 20151125
  Serious: Yes (Other)
  Sender: FDA-Public Use
  Company Number: JP-BAUSCH-BL-2015-021365

PATIENT
  Age: 61 Year
  Sex: Male

DRUGS (9)
  1. CYCLOPHOSPHAMIDE. [Concomitant]
     Active Substance: CYCLOPHOSPHAMIDE
     Indication: PLASMA CELL MYELOMA
  2. VINCRISTINE [Suspect]
     Active Substance: VINCRISTINE
     Indication: PLASMA CELL MYELOMA
     Dosage: THREE MONTHLY CYCLES
     Route: 065
     Dates: start: 200307
  3. ADRIAMYCIN [Suspect]
     Active Substance: DOXORUBICIN HYDROCHLORIDE
     Dosage: FOURTH CYCLE
     Route: 065
     Dates: start: 200604
  4. ADRIAMYCIN [Suspect]
     Active Substance: DOXORUBICIN HYDROCHLORIDE
     Indication: PLASMA CELL MYELOMA
     Dosage: THREE MONTHLY CYCLES
     Route: 065
     Dates: start: 200307
  5. MELPHALAN [Concomitant]
     Active Substance: MELPHALAN
     Indication: PLASMA CELL MYELOMA
  6. VINCRISTINE [Suspect]
     Active Substance: VINCRISTINE
     Dosage: FOURTH CYCLE
     Route: 065
     Dates: start: 200604
  7. DEXAMETHASONE. [Suspect]
     Active Substance: DEXAMETHASONE
     Dosage: FOURTH CYCLE
     Route: 065
     Dates: start: 200604
  8. DEXAMETHASONE. [Suspect]
     Active Substance: DEXAMETHASONE
     Indication: PLASMA CELL MYELOMA
     Dosage: THREE MONTHLY CYCLES
     Route: 065
     Dates: start: 200307
  9. THALIDOMIDE [Suspect]
     Active Substance: THALIDOMIDE
     Indication: PLASMA CELL MYELOMA
     Dosage: 200-300 MG DAILY
     Route: 065
     Dates: start: 200506

REACTIONS (1)
  - Arteriospasm coronary [Not Recovered/Not Resolved]
